FAERS Safety Report 9868615 (Version 3)
Quarter: 2014Q4

REPORT INFORMATION
  Report Type: Spontaneous
  Country: US (occurrence: US)
  Receive Date: 20140204
  Receipt Date: 20141006
  Transmission Date: 20150529
  Serious: Yes (Other)
  Sender: FDA-Public Use
  Company Number: US-009507513-1402USA000698

PATIENT
  Sex: Female

DRUGS (1)
  1. NUVARING [Suspect]
     Active Substance: ETHINYL ESTRADIOL\ETONOGESTREL
     Indication: CONTRACEPTION
     Route: 067

REACTIONS (5)
  - Polycystic ovaries [Unknown]
  - Cholecystectomy [Unknown]
  - Seasonal allergy [Unknown]
  - Deep vein thrombosis [Unknown]
  - Menstruation irregular [Unknown]

NARRATIVE: CASE EVENT DATE: 200711
